FAERS Safety Report 4340314-7 (Version None)
Quarter: 2004Q2

REPORT INFORMATION
  Report Type: 
  Country: None (occurrence: None)
  Receive Date: 20040412
  Receipt Date: 20040401
  Transmission Date: 20050107
  Serious: Yes (Disabling)
  Sender: FDA-Public Use
  Company Number: 2004022588

PATIENT
  Age: 42 Year
  Sex: Male
  Weight: 50 kg

DRUGS (7)
  1. VFEND [Suspect]
     Indication: ANTIFUNGAL PROPHYLAXIS
     Dosage: 400 MG (BID), ORAL
     Route: 048
     Dates: start: 20030601, end: 20040325
  2. TACROLIMUS (TACROLIMUS) [Concomitant]
  3. PREDNISOLONE [Concomitant]
  4. VALGANCICLOVIR (VALGANCICLOVIR) [Concomitant]
  5. COLISTIN (COLISTIN) [Concomitant]
  6. RISEDRONATE SODIUM (RISEDRONATE SODIUM) [Concomitant]
  7. CELECOXIB (CELECOXIB) [Concomitant]

REACTIONS (1)
  - FACIAL PAIN [None]
